FAERS Safety Report 11238087 (Version 3)
Quarter: 2015Q4

REPORT INFORMATION
  Report Type: Spontaneous
  Country: CA (occurrence: CA)
  Receive Date: 20150703
  Receipt Date: 20151123
  Transmission Date: 20160304
  Serious: Yes (Hospitalization, Other)
  Sender: FDA-Public Use
  Company Number: CA-009507513-1405CAN015158

PATIENT
  Age: 44 Year
  Sex: Female

DRUGS (4)
  1. INTRON A [Suspect]
     Active Substance: INTERFERON ALFA-2B
     Dosage: 2 MILLION IU, TUES AND THURS
     Route: 065
     Dates: start: 201406
  2. INTRON A [Suspect]
     Active Substance: INTERFERON ALFA-2B
     Indication: MAST CELL ACTIVATION SYNDROME
     Dosage: 3 MILLION IU, MON, WED, FRI
     Route: 065
     Dates: start: 201406
  3. INTRON A [Suspect]
     Active Substance: INTERFERON ALFA-2B
     Dosage: 1 MILLION IU, TID
     Route: 065
  4. INTRON A [Suspect]
     Active Substance: INTERFERON ALFA-2B
     Dosage: 3MIU ON MON, WED, FRI, 2.5MIU ON TUES, THURS, SAT AND SAN
     Route: 058
     Dates: start: 20140626

REACTIONS (14)
  - Adverse event [Recovered/Resolved]
  - Gastrointestinal hypermotility [Recovered/Resolved]
  - Pain [Recovered/Resolved]
  - Malaise [Recovered/Resolved]
  - Gastroenteritis [Recovered/Resolved]
  - Hypersensitivity [Recovered/Resolved]
  - Fatigue [Unknown]
  - Procedural pain [Recovered/Resolved]
  - Colitis ischaemic [Recovered/Resolved]
  - Abdominal pain [Recovered/Resolved]
  - Vomiting [Recovered/Resolved]
  - Abdominal pain [Unknown]
  - Hernia [Recovered/Resolved]
  - Product use issue [Unknown]

NARRATIVE: CASE EVENT DATE: 201406
